FAERS Safety Report 11109980 (Version 1)
Quarter: 2015Q2

REPORT INFORMATION
  Report Type: Spontaneous
  Country: US (occurrence: None)
  Receive Date: 20150512
  Receipt Date: 20150512
  Transmission Date: 20150821
  Serious: Yes (Life-Threatening, Disabling)
  Sender: FDA-Public Use
  Company Number: None

PATIENT
  Age: 95 Year
  Sex: Male
  Weight: 68.04 kg

DRUGS (10)
  1. LACTAID [Suspect]
     Active Substance: LACTASE
  2. XTANDI [Suspect]
     Active Substance: ENZALUTAMIDE
     Indication: PROSTATE CANCER METASTATIC
     Dosage: 40 MG, 2 CAPSULES ONCE DAILY, EVENING, BY MOUTH WITH WATER, APPLE SAUCE AND/OR CRUSHED FOOD.
     Route: 048
     Dates: start: 20130111, end: 20150306
  3. COLACE [Suspect]
     Active Substance: DOCUSATE SODIUM
  4. XTANDI [Concomitant]
     Active Substance: ENZALUTAMIDE
  5. TRUSOPT [Concomitant]
     Active Substance: DORZOLAMIDE HYDROCHLORIDE
  6. LUPRON [Concomitant]
     Active Substance: LEUPROLIDE ACETATE
  7. MIRALAX [Suspect]
     Active Substance: POLYETHYLENE GLYCOL 3350
  8. PREDNISONE. [Concomitant]
     Active Substance: PREDNISONE
  9. TYLENOL X STRENGTH [Concomitant]
  10. LATANOPROST. [Concomitant]
     Active Substance: LATANOPROST

REACTIONS (3)
  - Product physical issue [None]
  - Foreign body [None]
  - Dysphagia [None]

NARRATIVE: CASE EVENT DATE: 20150303
